FAERS Safety Report 18830797 (Version 6)
Quarter: 2021Q4

REPORT INFORMATION
  Report Type: Report from Study
  Country: US (occurrence: US)
  Receive Date: 20210203
  Receipt Date: 20211224
  Transmission Date: 20220303
  Serious: No
  Sender: FDA-Public Use
  Company Number: NVSC2021US016070

PATIENT
  Age: 57 Year
  Sex: Female

DRUGS (3)
  1. COSENTYX [Suspect]
     Active Substance: SECUKINUMAB
     Indication: Psoriasis
     Dosage: 300 MG, QMO, BENEATH THE SKIN, USUALLY VIA INJECTION
     Route: 058
     Dates: start: 20200909, end: 20210121
  2. COSENTYX [Suspect]
     Active Substance: SECUKINUMAB
     Indication: Psoriatic arthropathy
     Dosage: 300 MG/KG, QMO
     Route: 058
     Dates: start: 20200909, end: 20210216
  3. COSENTYX [Suspect]
     Active Substance: SECUKINUMAB
     Dosage: 300 MG
     Route: 058

REACTIONS (6)
  - Toothache [Recovered/Resolved]
  - Sinusitis [Recovered/Resolved]
  - Rash [Recovered/Resolved]
  - Therapeutic product effect incomplete [Recovered/Resolved]
  - COVID-19 [Unknown]
  - Product dose omission issue [Unknown]

NARRATIVE: CASE EVENT DATE: 20201204
